FAERS Safety Report 23168239 (Version 1)
Quarter: 2023Q4

REPORT INFORMATION
  Report Type: Spontaneous
  Country: US (occurrence: US)
  Receive Date: 20231109
  Receipt Date: 20231109
  Transmission Date: 20240110
  Serious: Yes (Hospitalization)
  Sender: FDA-Public Use
  Company Number: US-SANDOZ-SDZ2023US052453

PATIENT
  Age: 63 Year
  Sex: Female

DRUGS (3)
  1. TREPROSTINIL [Suspect]
     Active Substance: TREPROSTINIL
     Indication: Pulmonary arterial hypertension
     Dosage: 28 NG/KG/MIN
     Route: 042
     Dates: start: 202102
  2. TREPROSTINIL [Concomitant]
     Active Substance: TREPROSTINIL
     Indication: Product used for unknown indication
     Dosage: MDV
     Route: 065
  3. TREPROSTINIL [Concomitant]
     Active Substance: TREPROSTINIL
     Dosage: STER DIL SDV
     Route: 065

REACTIONS (1)
  - Gastrointestinal disorder [Unknown]

NARRATIVE: CASE EVENT DATE: 20230913
